FAERS Safety Report 25448041 (Version 3)
Quarter: 2025Q4

REPORT INFORMATION
  Report Type: Spontaneous
  Country: JP (occurrence: JP)
  Receive Date: 20250617
  Receipt Date: 20251021
  Transmission Date: 20260117
  Serious: Yes (Other)
  Sender: ELI LILLY AND COMPANY
  Company Number: JP-ELI_LILLY_AND_COMPANY-JP202506010205

PATIENT
  Age: 77 Year
  Sex: Female

DRUGS (4)
  1. KISUNLA [Suspect]
     Active Substance: DONANEMAB-AZBT
     Indication: Dementia Alzheimer^s type
     Dosage: 700 MG
     Route: 041
     Dates: start: 20250414
  2. URSODIOL [Concomitant]
     Active Substance: URSODIOL
     Indication: Hepatic cirrhosis
     Dosage: 400 MG
     Route: 048
  3. IRBESARTAN + AMLODIPINO [Concomitant]
     Indication: Hypertension
     Dosage: 1 DOSAGE FORM
     Route: 048
  4. BEZAFIBRATE [Concomitant]
     Active Substance: BEZAFIBRATE
     Indication: Hypercholesterolaemia
     Dosage: 400 MG
     Route: 048

REACTIONS (1)
  - Subarachnoid haemorrhage [Not Recovered/Not Resolved]

NARRATIVE: CASE EVENT DATE: 20250602
